FAERS Safety Report 10440773 (Version 1)
Quarter: 2014Q3

REPORT INFORMATION
  Report Type: Spontaneous
  Country: US (occurrence: None)
  Receive Date: 20140905
  Receipt Date: 20140905
  Transmission Date: 20150326
  Serious: Yes (Disabling)
  Sender: FDA-Public Use
  Company Number: None

PATIENT
  Age: 39 Year
  Sex: Female
  Weight: 108.41 kg

DRUGS (1)
  1. HUMIRA [Suspect]
     Active Substance: ADALIMUMAB
     Indication: PSORIATIC ARTHROPATHY
     Dosage: ONCE EVERY 2 WEEKS, GIVEN INTO/UNDER THE SKIN
     Dates: start: 20140902, end: 20140902

REACTIONS (2)
  - Pruritus generalised [None]
  - Injection site pruritus [None]

NARRATIVE: CASE EVENT DATE: 20140902
